FAERS Safety Report 21223282 (Version 1)
Quarter: 2022Q3

REPORT INFORMATION
  Report Type: Spontaneous
  Country: US (occurrence: None)
  Receive Date: 20220816
  Receipt Date: 20220816
  Transmission Date: 20221027
  Serious: Yes (Hospitalization)
  Sender: FDA-Public Use
  Company Number: None

PATIENT
  Age: 78 Year
  Sex: Male
  Weight: 58.97 kg

DRUGS (1)
  1. MEPERIDINE [Suspect]
     Active Substance: MEPERIDINE
     Indication: Product used for unknown indication
     Dosage: FREQUENCY : AS NEEDED;?
     Route: 042
     Dates: start: 20211103, end: 20211103

REACTIONS (4)
  - Chills [None]
  - Confusional state [None]
  - Agitation [None]
  - Oxygen saturation decreased [None]

NARRATIVE: CASE EVENT DATE: 20211103
